FAERS Safety Report 7670316-4 (Version None)
Quarter: 2011Q3

REPORT INFORMATION
  Report Type: 
  Country: None (occurrence: None)
  Receive Date: 20110809
  Receipt Date: 20110801
  Transmission Date: 20111222
  Serious: Yes (Hospitalization)
  Sender: FDA-Public Use
  Company Number: US-BIOGENIDEC-2011BI029452

PATIENT
  Age: 63 Year
  Sex: Female

DRUGS (2)
  1. MORPHINE [Concomitant]
  2. TYSABRI [Suspect]
     Indication: MULTIPLE SCLEROSIS
     Route: 042
     Dates: start: 20101015

REACTIONS (2)
  - KNEE ARTHROPLASTY [None]
  - DRUG HYPERSENSITIVITY [None]
